FAERS Safety Report 17727953 (Version 1)
Quarter: 2020Q2

REPORT INFORMATION
  Report Type: Spontaneous
  Country: US (occurrence: US)
  Receive Date: 20200429
  Receipt Date: 20200429
  Transmission Date: 20200714
  Serious: Yes (Hospitalization)
  Sender: FDA-Public Use
  Company Number: None

PATIENT
  Age: 62 Year
  Sex: Male
  Weight: 92.8 kg

DRUGS (1)
  1. FMP250 OPENBIOME [Suspect]
     Active Substance: FECAL MICROBIOTA
     Indication: CLOSTRIDIUM DIFFICILE INFECTION
     Dosage: ?          OTHER ROUTE:RECTALLY VIA COLONOSCOPY?
     Dates: start: 20200422, end: 20200422

REACTIONS (4)
  - Gastroenteritis Escherichia coli [None]
  - Asthenia [None]
  - Diarrhoea [None]
  - Abdominal pain [None]

NARRATIVE: CASE EVENT DATE: 20200422
